FAERS Safety Report 7411618-6 (Version None)
Quarter: 2011Q2

REPORT INFORMATION
  Report Type: 
  Country: None (occurrence: None)
  Receive Date: 20110413
  Receipt Date: 20101004
  Transmission Date: 20111010
  Serious: No
  Sender: FDA-Public Use
  Company Number: US-BRISTOL-MYERS SQUIBB COMPANY-15313166

PATIENT
  Age: 69 Year
  Sex: Male

DRUGS (2)
  1. TAXOTERE [Suspect]
     Indication: NASOPHARYNGEAL CANCER
     Dosage: SECOND DOSE 28-SEP-2010
     Route: 042
     Dates: start: 20100720
  2. ERBITUX [Suspect]
     Indication: NASOPHARYNGEAL CANCER
     Dosage: SECOND DOSE 28-SEP-2010
     Route: 042
     Dates: start: 20100908

REACTIONS (3)
  - PROTEINURIA [None]
  - WHITE BLOOD CELL COUNT DECREASED [None]
  - HAEMATURIA [None]
